FAERS Safety Report 4278126-5 (Version None)
Quarter: 2004Q1

REPORT INFORMATION
  Report Type: 
  Country: None (occurrence: None)
  Receive Date: 20040121
  Receipt Date: 20040113
  Transmission Date: 20041129
  Serious: Yes (Hospitalization)
  Sender: FDA-Public Use
  Company Number: JP-SHR-03-019104

PATIENT
  Age: 43 Year
  Sex: Male
  Weight: 46.5 kg

DRUGS (10)
  1. BETAFERON (INTERFERON BETA-1B) INJECTION, 250 UG [Suspect]
     Indication: MULTIPLE SCLEROSIS
     Dosage: 9.6 MIU
     Dates: start: 20021001
  2. PREDNISOLONE [Concomitant]
  3. FAMOTIDINE [Concomitant]
  4. ROCALTROL [Concomitant]
  5. TERNELIN (TIZANIDINE HYDROCHLORIDE) [Concomitant]
  6. LOXOPROFEN (LOXOPROFEN) [Concomitant]
  7. GASMOTIN (MOSAPRIDE CITRATE) [Concomitant]
  8. DIAZEPAM [Concomitant]
  9. NITRAZEPAM [Concomitant]
  10. LENDORM [Concomitant]

REACTIONS (5)
  - DRUG INEFFECTIVE [None]
  - INJECTION SITE PAIN [None]
  - INJECTION SITE REACTION [None]
  - INJECTION SITE ULCER [None]
  - PYREXIA [None]
